FAERS Safety Report 9788729 (Version 1)
Quarter: 2013Q4

REPORT INFORMATION
  Report Type: Spontaneous
  Country: US (occurrence: US)
  Receive Date: 20131230
  Receipt Date: 20131230
  Transmission Date: 20140711
  Serious: Yes (Life-Threatening, Hospitalization, Other)
  Sender: FDA-Public Use
  Company Number: US-BRISTOL-MYERS SQUIBB COMPANY-19933811

PATIENT
  Age: 61 Year
  Sex: Female
  Weight: 94 kg

DRUGS (1)
  1. BYDUREON [Suspect]
     Route: 058

REACTIONS (2)
  - Ejection fraction abnormal [Unknown]
  - Abdominal pain [Unknown]
